FAERS Safety Report 12270381 (Version 1)
Quarter: 2016Q2

REPORT INFORMATION
  Report Type: Spontaneous
  Country: US (occurrence: None)
  Receive Date: 20160414
  Receipt Date: 20160414
  Transmission Date: 20160815
  Serious: Yes (Disabling)
  Sender: FDA-Public Use
  Company Number: None

PATIENT
  Age: 25 Year
  Sex: Female
  Weight: 61.24 kg

DRUGS (1)
  1. PARAGARD T 380A [Suspect]
     Active Substance: COPPER

REACTIONS (13)
  - Fatigue [None]
  - Activities of daily living impaired [None]
  - Emotional distress [None]
  - Quality of life decreased [None]
  - Back pain [None]
  - Decreased appetite [None]
  - Mood swings [None]
  - Hypophagia [None]
  - Metal poisoning [None]
  - Impaired work ability [None]
  - Dysmenorrhoea [None]
  - Asthenia [None]
  - Weight decreased [None]

NARRATIVE: CASE EVENT DATE: 20150808
